FAERS Safety Report 10413235 (Version 1)
Quarter: 2014Q3

REPORT INFORMATION
  Report Type: Spontaneous
  Country: US (occurrence: None)
  Receive Date: 20140825
  Receipt Date: 20140825
  Transmission Date: 20150326
  Serious: Yes (Hospitalization)
  Sender: FDA-Public Use
  Company Number: 2014SCAL000051

PATIENT
  Age: 27 Year
  Sex: Female

DRUGS (1)
  1. METRONIDAZOLE. [Suspect]
     Active Substance: METRONIDAZOLE
     Indication: BACTERIAL VAGINOSIS

REACTIONS (10)
  - Acute psychosis [None]
  - Abnormal behaviour [None]
  - Delusion [None]
  - Urinary tract infection [None]
  - Bradyphrenia [None]
  - Paranoia [None]
  - Dyskinesia [None]
  - Thinking abnormal [None]
  - Hallucination, auditory [None]
  - Substance-induced psychotic disorder [None]
